FAERS Safety Report 6228151-X (Version None)
Quarter: 2009Q2

REPORT INFORMATION
  Report Type: 
  Country: None (occurrence: None)
  Receive Date: 20090612
  Receipt Date: 20090608
  Transmission Date: 20091009
  Serious: Yes (Death)
  Sender: FDA-Public Use
  Company Number: US-BRISTOL-MYERS SQUIBB COMPANY-14653992

PATIENT
  Age: 39 Year
  Sex: Male
  Weight: 104 kg

DRUGS (3)
  1. ABILIFY [Suspect]
     Indication: DEPRESSION
     Dates: start: 20070617, end: 20070617
  2. ABILIFY [Suspect]
     Indication: BIPOLAR DISORDER
     Dates: start: 20070617, end: 20070617
  3. ANTIDEPRESSANT [Concomitant]

REACTIONS (6)
  - CHILLS [None]
  - CONVULSION [None]
  - HYPERHIDROSIS [None]
  - MYOCARDIAL INFARCTION [None]
  - SWELLING FACE [None]
  - SWOLLEN TONGUE [None]
